FAERS Safety Report 14615414 (Version 12)
Quarter: 2019Q1

REPORT INFORMATION
  Report Type: Spontaneous
  Country: JP (occurrence: JP)
  Receive Date: 20180308
  Receipt Date: 20190213
  Transmission Date: 20190417
  Serious: Yes (Hospitalization, Disabling, Other)
  Sender: FDA-Public Use
  Company Number: JP-BRISTOL-MYERS SQUIBB COMPANY-BMS-2017-099933

PATIENT
  Age: 27 Year
  Sex: Female
  Weight: 50 kg

DRUGS (4)
  1. URSO [Concomitant]
     Active Substance: URSODIOL
     Indication: HEPATIC FUNCTION ABNORMAL
     Dosage: 150 MG, Q8H
     Route: 048
     Dates: start: 20170511, end: 20171213
  2. METHYCOBAL [Concomitant]
     Active Substance: METHYLCOBALAMIN
     Indication: METASTATIC RENAL CELL CARCINOMA
     Dosage: 1500 UG, Q8H
     Route: 048
     Dates: start: 20160208, end: 20171025
  3. NERISONA [Suspect]
     Active Substance: DIFLUCORTOLONE VALERATE
     Indication: DRUG ERUPTION
     Dosage: UNK, Q12H
     Route: 062
     Dates: start: 20170911, end: 201710
  4. OPDIVO [Suspect]
     Active Substance: NIVOLUMAB
     Indication: RENAL CELL CARCINOMA
     Dosage: 3 MG/KG, Q2WK
     Route: 041
     Dates: start: 20170712, end: 20171018

REACTIONS (7)
  - Autoimmune thyroiditis [Unknown]
  - Thyroiditis [Recovering/Resolving]
  - Eczema [Recovering/Resolving]
  - Drug eruption [Recovered/Resolved]
  - Fulminant type 1 diabetes mellitus [Not Recovered/Not Resolved]
  - Sjogren^s syndrome [Not Recovered/Not Resolved]
  - Hypothyroidism [Not Recovered/Not Resolved]

NARRATIVE: CASE EVENT DATE: 20170830
